FAERS Safety Report 16894562 (Version 3)
Quarter: 2019Q4

REPORT INFORMATION
  Report Type: Spontaneous
  Country: US (occurrence: US)
  Receive Date: 20191008
  Receipt Date: 20191226
  Transmission Date: 20200122
  Serious: No
  Sender: FDA-Public Use
  Company Number: US-PFIZER INC-2019430610

PATIENT
  Age: 56 Year
  Sex: Male
  Weight: 158.73 kg

DRUGS (1)
  1. VIAGRA [Suspect]
     Active Substance: SILDENAFIL CITRATE
     Indication: LIBIDO INCREASED
     Dosage: 00 MG, 30 MINUTES BEFORE SEXUAL ACTIVITY
     Route: 048
     Dates: start: 20170412

REACTIONS (3)
  - Nasopharyngitis [Unknown]
  - Drug hypersensitivity [Unknown]
  - Speech disorder [Unknown]
